FAERS Safety Report 19925753 (Version 1)
Quarter: 2021Q4

REPORT INFORMATION
  Report Type: Spontaneous
  Country: US (occurrence: US)
  Receive Date: 20211007
  Receipt Date: 20211007
  Transmission Date: 20220303
  Serious: No
  Sender: FDA-Public Use
  Company Number: US-ASPEN-GLO2021US007767

PATIENT

DRUGS (2)
  1. LEUKERAN [Suspect]
     Active Substance: CHLORAMBUCIL
     Indication: Chronic lymphocytic leukaemia
     Dosage: 8 MG, QD
     Route: 065
     Dates: start: 20210918
  2. LEUKERAN [Suspect]
     Active Substance: CHLORAMBUCIL
     Dosage: 8 MG, TOOK DOSES ON SAT, SUN AND MON
     Route: 065

REACTIONS (1)
  - Product storage error [Unknown]

NARRATIVE: CASE EVENT DATE: 20210918
